FAERS Safety Report 9571033 (Version 2)
Quarter: 2014Q1

REPORT INFORMATION
  Report Type: Spontaneous
  Country: US (occurrence: US)
  Receive Date: 20131001
  Receipt Date: 20140304
  Transmission Date: 20141002
  Serious: Yes (Other)
  Sender: FDA-Public Use
  Company Number: US-JNJFOC-20130915831

PATIENT
  Sex: Female
  Weight: 78.02 kg

DRUGS (7)
  1. STELARA [Suspect]
     Indication: PSORIASIS
     Route: 058
     Dates: start: 20130731, end: 20130821
  2. METHOTREXATE [Concomitant]
     Route: 065
  3. HYDROCHLOROTHIAZIDE [Concomitant]
     Route: 048
  4. ATENOLOL [Concomitant]
     Route: 048
  5. VITAMIN D [Concomitant]
     Route: 048
  6. TRIAMCINOLONE [Concomitant]
     Route: 065
  7. SIMVASTATIN [Concomitant]
     Route: 048

REACTIONS (1)
  - Erythrodermic psoriasis [Recovered/Resolved]
